FAERS Safety Report 7065646-3 (Version None)
Quarter: 2010Q4

REPORT INFORMATION
  Report Type: 
  Country: None (occurrence: None)
  Receive Date: 20101027
  Receipt Date: 20101015
  Transmission Date: 20110411
  Serious: Yes (Congenital Anomaly)
  Sender: FDA-Public Use
  Company Number: CHPA2010GB16300

PATIENT

DRUGS (14)
  1. SENNA UNKNOWN MANUFACTURER (NCH) [Suspect]
     Dosage: UNK, UNK
     Route: 064
     Dates: start: 20090309, end: 20090420
  2. ALENDRONIC ACID (NGX) [Suspect]
     Dosage: 70 MG, QD
     Route: 064
  3. LACTULOSE (NGX) [Suspect]
     Dosage: UNK, UNK
     Route: 064
     Dates: start: 20090309, end: 20090420
  4. AZATHIOPRINE [Suspect]
     Dosage: 50 MG, QD
     Route: 064
     Dates: start: 20090309
  5. CHLORHEXIDINE GLUCONATE [Suspect]
     Dosage: UNK, UNK
     Route: 064
     Dates: start: 20090309, end: 20090420
  6. HYDROXYCHLOROQUINE [Suspect]
     Dosage: 200 MG, UNK
     Route: 064
     Dates: start: 20090318
  7. METHYLPREDNISOLONE [Suspect]
     Dosage: UNK, UNK
     Route: 064
  8. MUPIROCIN [Suspect]
     Dosage: UNK, UNK
     Route: 064
     Dates: start: 20090309, end: 20090420
  9. PARACETAMOL [Suspect]
     Dosage: UNK, UNK
     Route: 064
     Dates: start: 20090309, end: 20090420
  10. PREDNISOLONE [Suspect]
     Dosage: UNK, UNK
     Route: 064
     Dates: start: 20090309
  11. SIMPLE LINCTUS [Suspect]
     Dosage: UNK, UNK
     Route: 064
     Dates: start: 20090309, end: 20090420
  12. ^ADCAL 3^ [Suspect]
     Dosage: UNK, UNK
     Route: 064
  13. ASPIRIN [Concomitant]
     Dosage: UNK, UNK
     Route: 065
  14. FOLIC ACID [Concomitant]
     Dosage: UNK, UNK
     Route: 065

REACTIONS (3)
  - CLEFT LIP AND PALATE [None]
  - MATERNAL CONDITION AFFECTING FOETUS [None]
  - TERATOGENICITY [None]
